FAERS Safety Report 7855590-3 (Version None)
Quarter: 2011Q4

REPORT INFORMATION
  Report Type: 
  Country: None (occurrence: None)
  Receive Date: 20111026
  Receipt Date: 20111011
  Transmission Date: 20120403
  Serious: Yes (Life-Threatening, Hospitalization)
  Sender: FDA-Public Use
  Company Number: US-GILEAD-2011-0039400

PATIENT
  Age: 36 Year
  Sex: Female

DRUGS (11)
  1. DICLOFENAC POTASSIUM [Concomitant]
     Dates: start: 20110311, end: 20110312
  2. TENOFOVIR DISOPROXIL FUMARATE [Suspect]
     Dates: start: 20110516
  3. PREDNISOLONE [Concomitant]
     Dates: start: 20110311, end: 20110315
  4. ARTEMETHER [Concomitant]
     Indication: ANTIRETROVIRAL THERAPY
     Dates: start: 20110311, end: 20110314
  5. DICLOFENAC POTASSIUM [Concomitant]
     Route: 030
  6. GAVISCON [Concomitant]
     Dates: start: 20110316
  7. TENOFOVIR DISOPROXIL FUMARATE [Suspect]
     Dates: start: 20090713, end: 20110316
  8. ASPIRIN [Concomitant]
     Dates: start: 20110311, end: 20110315
  9. CLOTRIMAZOLE [Concomitant]
     Dates: start: 20110216, end: 20110225
  10. LUMEFANTRINE [Concomitant]
     Indication: ANTIRETROVIRAL THERAPY
     Dates: start: 20110311, end: 20110314
  11. NITROFURANTOIN [Concomitant]
     Indication: URINARY TRACT INFECTION
     Dates: start: 20110316

REACTIONS (1)
  - ABORTION SPONTANEOUS [None]
